FAERS Safety Report 21494028 (Version 4)
Quarter: 2022Q4

REPORT INFORMATION
  Report Type: Spontaneous
  Country: JP (occurrence: JP)
  Receive Date: 20221021
  Receipt Date: 20221210
  Transmission Date: 20230113
  Serious: No
  Sender: FDA-Public Use
  Company Number: JP-JNJFOC-20220637901

PATIENT
  Age: 36 Year
  Sex: Female
  Weight: 64 kg

DRUGS (10)
  1. STELARA [Suspect]
     Active Substance: USTEKINUMAB
     Indication: Colitis ulcerative
     Dosage: DOSE UNKNOWN
     Route: 041
  2. STELARA [Suspect]
     Active Substance: USTEKINUMAB
     Dosage: DOSE UNKNOWN. THERAPY END DATE- //2022
     Route: 058
     Dates: end: 2022
  3. STELARA [Suspect]
     Active Substance: USTEKINUMAB
     Dosage: THERAPY START DATE- /JUN/2022, STOP DATE- 26/AUG/2022
     Route: 058
     Dates: start: 2022, end: 20220826
  4. CEPHALEXIN [Concomitant]
     Active Substance: CEPHALEXIN
     Indication: Infection prophylaxis
     Route: 048
     Dates: start: 20221004, end: 20221005
  5. PROSTIN E2 [Concomitant]
     Active Substance: DINOPROSTONE
     Indication: Labour induction
     Route: 048
     Dates: start: 20221004, end: 20221004
  6. OXYTOCIN [Concomitant]
     Active Substance: OXYTOCIN
     Indication: Labour induction
     Dosage: 5 UNITS
     Route: 041
     Dates: start: 20221005, end: 20221005
  7. DEXTROSE [Concomitant]
     Active Substance: DEXTROSE
     Route: 041
     Dates: start: 20221005, end: 20221005
  8. AMPICILLIN SODIUM\SULBACTAM SODIUM [Concomitant]
     Active Substance: AMPICILLIN SODIUM\SULBACTAM SODIUM
     Indication: Streptococcus test positive
     Route: 041
     Dates: start: 20221005, end: 20221005
  9. ISOTONIC SODIUM CHLORIDE SOLUTION [Concomitant]
     Active Substance: SODIUM CHLORIDE
     Route: 041
     Dates: start: 20221005, end: 20221005
  10. PENTASA [Concomitant]
     Active Substance: MESALAMINE
     Indication: Colitis ulcerative
     Route: 048

REACTIONS (2)
  - COVID-19 [Unknown]
  - Exposure during pregnancy [Recovered/Resolved]

NARRATIVE: CASE EVENT DATE: 20220418
